FAERS Safety Report 5296521-2 (Version None)
Quarter: 2007Q2

REPORT INFORMATION
  Report Type: 
  Country: None (occurrence: None)
  Receive Date: 20070413
  Receipt Date: 20070329
  Transmission Date: 20071010
  Serious: Yes (Other)
  Sender: FDA-Public Use
  Company Number: US-AMGEN-STX217603

PATIENT
  Sex: Male

DRUGS (2)
  1. ENBREL [Suspect]
     Indication: ANKYLOSING SPONDYLITIS
     Route: 058
     Dates: start: 20070303
  2. AZULFIDINE [Concomitant]
     Dates: start: 20070329

REACTIONS (4)
  - CROHN'S DISEASE [None]
  - HIATUS HERNIA [None]
  - OESOPHAGITIS [None]
  - PANCREATIC NEOPLASM [None]
